FAERS Safety Report 9408878 (Version 1)
Quarter: 2013Q3

REPORT INFORMATION
  Report Type: Spontaneous
  Country: JP (occurrence: JP)
  Receive Date: 20130719
  Receipt Date: 20130719
  Transmission Date: 20140515
  Serious: Yes (Other)
  Sender: FDA-Public Use
  Company Number: JP-009507513-1307JPN006938

PATIENT
  Age: 20 Year
  Sex: Male

DRUGS (1)
  1. GASTER [Suspect]

REACTIONS (1)
  - Liver disorder [Unknown]
